FAERS Safety Report 9837787 (Version 1)
Quarter: 2013Q4

REPORT INFORMATION
  Report Type: Spontaneous
  Country: US (occurrence: None)
  Receive Date: 20131205
  Receipt Date: 20131205
  Transmission Date: 20140711
  Serious: Yes (Hospitalization)
  Sender: FDA-Public Use
  Company Number: 163-POMAL-13101383

PATIENT
  Age: 73 Year
  Sex: Male
  Weight: 62.6 kg

DRUGS (15)
  1. POMALYST (POMALIDOMIDE) (4 MILLIGRAM, CAPSULES) [Suspect]
     Indication: PLASMA CELL MYELOMA
     Dosage: 4 MG, 1 IN 1 D, PO
     Route: 048
     Dates: start: 201303
  2. NEXIUM (ESOMEPRAZOLE) (UNKNOWN) [Concomitant]
  3. ALLOPURINOL (ALLOPURINOL) (UNKNOWN) [Concomitant]
  4. FUROSEMIDE (FUROSEMIDE) (UNKNOWN) [Concomitant]
  5. ALDACTONE (SPIRONOLACTONE) (UNKNOWN) [Concomitant]
  6. TYLENOL (PARACETAMOL) (UNKNOWN) [Concomitant]
  7. DIGOXIN (DIGOXIN) (TABLETS) [Concomitant]
  8. AMIODARONE HCL (AMIODARONE HYDROCHLORIDE) (TABLETS)? [Concomitant]
  9. LISINOPRIL (LISINOPRIL) (UNKNOWN) [Concomitant]
  10. HYDROCODONE-ACETAMINOPHEN (VICODIN) (TABLETS)? [Concomitant]
  11. LEVAQUIN (LEVOFLOXACIN) (UNKNOWN) [Concomitant]
  12. COLACE [Concomitant]
  13. OMEPRAZOLE (OMEPRAZOLE) (UNKNOWN) [Concomitant]
  14. CLONIDINE HCL (CLONIDINE HYDROCHLORIDE) (TABLETS0 [Concomitant]
  15. PROTONIX (PANTOPRAZOLE) (UNKNOWN) [Concomitant]

REACTIONS (3)
  - Anaemia [None]
  - Diarrhoea [None]
  - Constipation [None]
